FAERS Safety Report 7086807-3 (Version None)
Quarter: 2010Q4

REPORT INFORMATION
  Report Type: 
  Country: None (occurrence: None)
  Receive Date: 20101105
  Receipt Date: 20101103
  Transmission Date: 20110411
  Serious: Yes (Death)
  Sender: FDA-Public Use
  Company Number: US-ABBOTT-10P-163-0683064-00

PATIENT
  Sex: Female

DRUGS (1)
  1. HUMIRA [Suspect]
     Indication: RHEUMATOID ARTHRITIS
     Dates: start: 20080101, end: 20090101

REACTIONS (1)
  - MALIGNANT NEOPLASM OF THORAX [None]
